FAERS Safety Report 22141087 (Version 1)
Quarter: 2023Q1

REPORT INFORMATION
  Report Type: Spontaneous
  Country: US (occurrence: None)
  Receive Date: 20230324
  Receipt Date: 20230324
  Transmission Date: 20230417
  Serious: Yes (Other)
  Sender: FDA-Public Use
  Company Number: None

PATIENT
  Age: 72 Year
  Sex: Female
  Weight: 69.75 kg

DRUGS (20)
  1. CHILDRENS XYZAL ALLERGY 24HR [Suspect]
     Active Substance: LEVOCETIRIZINE DIHYDROCHLORIDE
     Indication: Sinus disorder
     Dosage: OTHER QUANTITY : 5 ML;?FREQUENCY : AT BEDTIME;?
     Route: 048
     Dates: start: 20230315, end: 20230315
  2. CHILDRENS XYZAL ALLERGY 24HR [Suspect]
     Active Substance: LEVOCETIRIZINE DIHYDROCHLORIDE
     Indication: Apnoea
  3. TIROSINT [Concomitant]
     Active Substance: LEVOTHYROXINE SODIUM
  4. LIOTHYRONINE [Concomitant]
     Active Substance: LIOTHYRONINE
  5. PROGESTERONE [Concomitant]
     Active Substance: PROGESTERONE
  6. bi-estrogen [Concomitant]
  7. IBUPROFEN [Concomitant]
     Active Substance: IBUPROFEN
  8. NAPROXEN [Concomitant]
     Active Substance: NAPROXEN
  9. ANTIHISTAMINES NOS [Concomitant]
     Active Substance: ANTIHISTAMINES NOS
  10. Bcomplex [Concomitant]
  11. VITAMIN C [Concomitant]
     Active Substance: ASCORBIC ACID
  12. VITAMIN D3 [Concomitant]
     Active Substance: CHOLECALCIFEROL
  13. ACETYLCYSTEINE [Concomitant]
     Active Substance: ACETYLCYSTEINE
  14. Multidophilus probiotic blend [Concomitant]
  15. MAGNESIUM CITRATE [Concomitant]
     Active Substance: MAGNESIUM CITRATE
  16. ZINC [Concomitant]
     Active Substance: ZINC
  17. SELENIUM [Concomitant]
     Active Substance: SELENIUM
  18. COPPER [Concomitant]
     Active Substance: COPPER
  19. Collagen Type II [Concomitant]
  20. Fenugreek + Thyme herb combination [Concomitant]

REACTIONS (3)
  - Fatigue [None]
  - Feeling abnormal [None]
  - Hypersomnia [None]

NARRATIVE: CASE EVENT DATE: 20230315
